FAERS Safety Report 7912211-9 (Version None)
Quarter: 2011Q4

REPORT INFORMATION
  Report Type: 
  Country: None (occurrence: None)
  Receive Date: 20111114
  Receipt Date: 20111109
  Transmission Date: 20120403
  Serious: Yes (Other)
  Sender: FDA-Public Use
  Company Number: US-BAYER-2011-036342

PATIENT
  Age: 58 Year
  Sex: Male
  Weight: 179.14 kg

DRUGS (16)
  1. TRASYLOL [Suspect]
     Indication: CORONARY ARTERY BYPASS
     Dosage: 1.4 MG, ONCE TEST DOSE
     Route: 042
     Dates: start: 20070417
  2. TRASYLOL [Suspect]
     Dosage: 50 ML/HR INFUSION
     Route: 042
     Dates: start: 20070417
  3. LISINOPRIL [Concomitant]
     Dosage: 20 MG, QD
     Route: 048
  4. ACETYLSALICYLIC ACID SRT [Concomitant]
     Dosage: 81 MG, QD
     Route: 048
  5. FUROSEMIDE [Concomitant]
     Dosage: 40 MG, QD
     Route: 048
  6. INDOMETHACIN [Concomitant]
     Dosage: 50 MG, PRN
     Route: 048
  7. CONTRAST MEDIA [Concomitant]
     Indication: CATHETERISATION CARDIAC
     Dosage: UNK
     Dates: start: 20070329
  8. TRASYLOL [Suspect]
     Dosage: 200 ML LOADING DOSE
     Route: 042
     Dates: start: 20070417
  9. LORAZEPAM [Concomitant]
     Dosage: 2 MG, TID AS NEEDED
     Route: 048
  10. POTASSIUM [Concomitant]
     Dosage: 20 MEQ, QD
     Route: 048
  11. VANCOMYCIN [Concomitant]
     Dosage: UNK
     Route: 042
     Dates: start: 20070417
  12. SPIRONOLACTONE [Concomitant]
  13. PROTAMINE SULFATE [Concomitant]
     Indication: HEPARIN NEUTRALISATION THERAPY
     Dosage: 650 MG, UNK
     Route: 042
     Dates: start: 20070417
  14. HEPARIN [Concomitant]
     Indication: ANTICOAGULANT THERAPY
     Dosage: 30000 U, UNK
     Route: 042
     Dates: start: 20070417
  15. SIMVASTATIN [Concomitant]
     Dosage: 40 MG, UNK
     Route: 048
  16. METOPROLOL SUCCINATE [Concomitant]
     Dosage: 25 MG, BID
     Route: 048

REACTIONS (11)
  - RENAL FAILURE [None]
  - PAIN [None]
  - ANXIETY [None]
  - MULTI-ORGAN FAILURE [None]
  - EMOTIONAL DISTRESS [None]
  - RENAL IMPAIRMENT [None]
  - RENAL INJURY [None]
  - CEREBROVASCULAR ACCIDENT [None]
  - ACUTE MYOCARDIAL INFARCTION [None]
  - STRESS [None]
  - FEAR [None]
